FAERS Safety Report 6338371-1 (Version None)
Quarter: 2009Q3

REPORT INFORMATION
  Report Type: 
  Country: None (occurrence: None)
  Receive Date: 20090901
  Receipt Date: 20090819
  Transmission Date: 20100115
  Serious: Yes (Other)
  Sender: FDA-Public Use
  Company Number: DSU-2009-01732

PATIENT
  Age: 58 Year
  Sex: Female
  Weight: 57.1532 kg

DRUGS (7)
  1. EVOXAC [Suspect]
     Indication: SJOGREN'S SYNDROME
     Dosage: 90 MG (30 MG, TID), PER ORAL
     Route: 048
  2. PROTONIX [Concomitant]
  3. ZOLOFT (SERTRALIEN HYDROCHLORIDE) (100 MILLIGRAM) (SERTRALINE HYDROCHL [Concomitant]
  4. CELEBREX [Concomitant]
  5. PLAQUENIL (HYDROXYCHLOROQUINE SULFATE) (HYDROXYCHLOROQUINE SULFATE) [Concomitant]
  6. TEMAZEPAM (TEMAZEPAM) (15 MILLIGRAM) (TEMAZEPAM) [Concomitant]
  7. FOSAMAX (ALENDRONATE SODIUM) (ALENDRONATE SODIUM) [Concomitant]

REACTIONS (5)
  - HEADACHE [None]
  - INTRACRANIAL HYPOTENSION [None]
  - NAUSEA [None]
  - SCIATICA [None]
  - TREATMENT FAILURE [None]
